FAERS Safety Report 8900110 (Version 1)
Quarter: 2012Q4

REPORT INFORMATION
  Report Type: 
  Country: US (occurrence: US)
  Receive Date: 20121109
  Receipt Date: 20121109
  Transmission Date: 20130627
  Serious: Yes (Hospitalization)
  Sender: FDA-Public Use
  Company Number: US-BAYER-2012-116506

PATIENT
  Age: 98 Year
  Sex: Female

DRUGS (2)
  1. AVELOX [Suspect]
     Dosage: UNK
     Dates: start: 20121103
  2. ANTIHYPERTENSIVES [Concomitant]

REACTIONS (1)
  - Wrong technique in drug usage process [None]
